FAERS Safety Report 18218570 (Version 1)
Quarter: 2020Q3

REPORT INFORMATION
  Report Type: Spontaneous
  Country: CA (occurrence: CA)
  Receive Date: 20200901
  Receipt Date: 20200901
  Transmission Date: 20201103
  Serious: Yes (Other)
  Sender: FDA-Public Use
  Company Number: CA-FRESENIUS KABI-FK202008819

PATIENT
  Age: 8 Year
  Sex: Male
  Weight: 20 kg

DRUGS (6)
  1. PANTOPRAZOLE [Concomitant]
     Active Substance: PANTOPRAZOLE
     Indication: PRODUCT USED FOR UNKNOWN INDICATION
     Route: 065
  2. SULFAMETHOXAZOLE/TRIMETHOPRIM [Concomitant]
     Active Substance: SULFAMETHOXAZOLE\TRIMETHOPRIM
     Indication: PRODUCT USED FOR UNKNOWN INDICATION
     Route: 065
  3. VINCRISTINE SULFATE. [Concomitant]
     Active Substance: VINCRISTINE SULFATE
     Indication: PRODUCT USED FOR UNKNOWN INDICATION
     Route: 065
  4. ETOPOSIDE (MANUFACTURER UNKNOWN) [Suspect]
     Active Substance: ETOPOSIDE
     Indication: PRODUCT USED FOR UNKNOWN INDICATION
     Route: 042
  5. DOXORUBICIN [Suspect]
     Active Substance: DOXORUBICIN
     Indication: HODGKIN^S DISEASE
     Route: 042
  6. MACROGOL [Concomitant]
     Active Substance: POLYETHYLENE GLYCOLS
     Indication: PRODUCT USED FOR UNKNOWN INDICATION
     Dosage: POLYETHYLENE GLYCOL 3350
     Route: 065

REACTIONS (2)
  - Febrile neutropenia [Unknown]
  - Respiratory disorder [Unknown]
